FAERS Safety Report 19945461 (Version 1)
Quarter: 2021Q4

REPORT INFORMATION
  Report Type: Spontaneous
  Country: US (occurrence: US)
  Receive Date: 20211012
  Receipt Date: 20211012
  Transmission Date: 20220303
  Serious: Yes (Other)
  Sender: FDA-Public Use
  Company Number: US- INDIVIOR LIMITED-INDV-131348-2021

PATIENT

DRUGS (2)
  1. SUBLOCADE [Suspect]
     Active Substance: BUPRENORPHINE
     Indication: Drug dependence
     Dosage: 300 MILLIGRAM, QMO
     Route: 065
     Dates: start: 2021
  2. FENTANYL [Suspect]
     Active Substance: FENTANYL
     Indication: Dependence
     Dosage: UNKNOWN
     Route: 065

REACTIONS (3)
  - Seizure [Unknown]
  - Weight decreased [Unknown]
  - Drug abuse [Unknown]

NARRATIVE: CASE EVENT DATE: 20210101
